FAERS Safety Report 5213085-X (Version None)
Quarter: 2007Q1

REPORT INFORMATION
  Report Type: 
  Country: None (occurrence: None)
  Receive Date: 20070116
  Receipt Date: 20070110
  Transmission Date: 20070707
  Serious: Yes (Disabling, Other)
  Sender: FDA-Public Use
  Company Number: S04-USA-06735-01

PATIENT
  Age: 9 Year
  Sex: Female

DRUGS (6)
  1. LEXAPRO [Suspect]
     Indication: AFFECTIVE DISORDER
     Dosage: 5 MG QD PO
     Route: 048
     Dates: start: 20040101
  2. LEXAPRO [Suspect]
     Indication: POST-TRAUMATIC STRESS DISORDER
     Dosage: 5 MG QD PO
     Route: 048
     Dates: start: 20040101
  3. SEROQUEL [Concomitant]
  4. LITHIUM CARBONATE [Concomitant]
  5. ZYPREXA [Concomitant]
  6. TENEX (GUANFACINE HDYROCHLORIDE) [Concomitant]

REACTIONS (15)
  - ABNORMAL BEHAVIOUR [None]
  - AFFECTIVE DISORDER [None]
  - ANXIETY [None]
  - BIPOLAR DISORDER [None]
  - CHOREA [None]
  - CONDITION AGGRAVATED [None]
  - CONVULSION [None]
  - DIARRHOEA [None]
  - ELECTROENCEPHALOGRAM ABNORMAL [None]
  - ENURESIS [None]
  - LIBIDO INCREASED [None]
  - SELF-INJURIOUS IDEATION [None]
  - SEXUAL DYSFUNCTION [None]
  - SUICIDAL IDEATION [None]
  - SUICIDE ATTEMPT [None]
